FAERS Safety Report 7207997-5 (Version None)
Quarter: 2010Q4

REPORT INFORMATION
  Report Type: 
  Country: None (occurrence: None)
  Receive Date: 20101230
  Receipt Date: 20101230
  Transmission Date: 20110411
  Serious: Yes (Other)
  Sender: FDA-Public Use
  Company Number: None

PATIENT
  Age: 33 Year
  Sex: Male
  Weight: 89.3586 kg

DRUGS (1)
  1. TAMIFLU [Suspect]
     Indication: INFLUENZA
     Dosage: 75 MG TWICE DAILY PO
     Route: 048
     Dates: start: 20101226, end: 20101228

REACTIONS (6)
  - AGGRESSION [None]
  - ANGER [None]
  - HALLUCINATIONS, MIXED [None]
  - INSOMNIA [None]
  - MENTAL DISORDER [None]
  - PANIC ATTACK [None]
